FAERS Safety Report 6578290-9 (Version None)
Quarter: 2010Q1

REPORT INFORMATION
  Report Type: 
  Country: None (occurrence: None)
  Receive Date: 20100211
  Receipt Date: 20100202
  Transmission Date: 20100710
  Serious: Yes (Hospitalization)
  Sender: FDA-Public Use
  Company Number: B0631487A

PATIENT
  Age: 35 Year
  Sex: Male

DRUGS (1)
  1. ARIXTRA [Suspect]
     Indication: PHLEBITIS
     Route: 058
     Dates: start: 20090101

REACTIONS (3)
  - COMPARTMENT SYNDROME [None]
  - GAIT DISTURBANCE [None]
  - HAEMATOMA [None]
